FAERS Safety Report 18137734 (Version 1)
Quarter: 2020Q3

REPORT INFORMATION
  Report Type: Spontaneous
  Country: CN (occurrence: CN)
  Receive Date: 20200811
  Receipt Date: 20200811
  Transmission Date: 20201103
  Serious: Yes (Other)
  Sender: FDA-Public Use
  Company Number: CN-BAXTER-2020BAX016052

PATIENT
  Age: 55 Year
  Sex: Male

DRUGS (4)
  1. DEXAMETHASONE. [Concomitant]
     Active Substance: DEXAMETHASONE
     Indication: PROPHYLAXIS
     Dosage: BEFORE CYCLOPHOSPHAMIDE
     Route: 065
  2. PHENERGAN [Concomitant]
     Active Substance: PROMETHAZINE HYDROCHLORIDE
     Indication: PROPHYLAXIS
     Dosage: BEFORE CYCLOPHOSPHAMIDE
     Route: 065
  3. ENDOXAN [Suspect]
     Active Substance: CYCLOPHOSPHAMIDE
     Indication: BONE MARROW CONDITIONING REGIMEN
     Dosage: FOR 2 HOURS
     Route: 041
     Dates: start: 20200730, end: 20200730
  4. ENDOXAN [Suspect]
     Active Substance: CYCLOPHOSPHAMIDE
     Dosage: DOSE RE?INTRODUCED
     Route: 041

REACTIONS (8)
  - Nasal congestion [Recovered/Resolved]
  - Skin tightness [Recovered/Resolved]
  - Lacrimation increased [Recovered/Resolved]
  - Swelling face [Recovered/Resolved]
  - Oral pain [Recovered/Resolved]
  - Rhinorrhoea [Recovered/Resolved]
  - Swelling [Recovered/Resolved]
  - Head discomfort [Recovered/Resolved]

NARRATIVE: CASE EVENT DATE: 20200730
